FAERS Safety Report 9683639 (Version 1)
Quarter: 2013Q4

REPORT INFORMATION
  Report Type: Report from Study
  Country: US (occurrence: US)
  Receive Date: 20131112
  Receipt Date: 20131112
  Transmission Date: 20140711
  Serious: Yes (Hospitalization)
  Sender: FDA-Public Use
  Company Number: US-US-EMD SERONO, INC.-7248219

PATIENT
  Age: 48 Year
  Sex: Female

DRUGS (2)
  1. REBIF [Suspect]
     Indication: MULTIPLE SCLEROSIS
     Route: 058
     Dates: start: 20040503, end: 201306
  2. REBIF [Suspect]
     Dates: start: 201307, end: 20130830

REACTIONS (2)
  - Clostridium difficile colitis [Recovered/Resolved]
  - Sinusitis [Recovered/Resolved]
